FAERS Safety Report 6171653-5 (Version None)
Quarter: 2009Q2

REPORT INFORMATION
  Report Type: 
  Country: None (occurrence: None)
  Receive Date: 20090429
  Receipt Date: 20090422
  Transmission Date: 20091009
  Serious: Yes (Hospitalization, Other)
  Sender: FDA-Public Use
  Company Number: US-AVENTIS-200913519US

PATIENT
  Age: 66 Year
  Sex: Male

DRUGS (9)
  1. LANTUS [Suspect]
     Route: 058
  2. APIDRA [Suspect]
     Route: 058
  3. OPTICLIK (INSULIN INJECTION PEN) [Suspect]
  4. PLAVIX [Concomitant]
     Dosage: DOSE: UNK
  5. ASPIRIN [Concomitant]
  6. LISINOPRIL [Concomitant]
     Dosage: DOSE: UNK
  7. ZOCOR [Concomitant]
     Dosage: DOSE: UNK
  8. FLOMAX [Concomitant]
     Dosage: DOSE: UNK
  9. VITAMIN B NOS [Concomitant]
     Dosage: DOSE: UNK

REACTIONS (4)
  - CARDIAC FAILURE [None]
  - FALL [None]
  - HIP FRACTURE [None]
  - NEUROPATHY PERIPHERAL [None]
